FAERS Safety Report 7122822-9 (Version None)
Quarter: 2010Q4

REPORT INFORMATION
  Report Type: 
  Country: None (occurrence: None)
  Receive Date: 20101124
  Receipt Date: 20101116
  Transmission Date: 20110411
  Serious: Yes (Hospitalization, Other)
  Sender: FDA-Public Use
  Company Number: US-ABBOTT-10P-163-0685593-00

PATIENT
  Age: 45 Year
  Sex: Female

DRUGS (26)
  1. DEPAKOTE [Suspect]
     Indication: PRODUCT USED FOR UNKNOWN INDICATION
  2. SYNTHROID [Suspect]
     Indication: PRODUCT USED FOR UNKNOWN INDICATION
  3. GEODON [Suspect]
     Indication: PRODUCT USED FOR UNKNOWN INDICATION
  4. GEODON [Suspect]
  5. GEODON [Suspect]
     Dosage: POWDER FOR SOLUTION
     Route: 030
  6. ALPRAZOLAM [Suspect]
     Indication: PRODUCT USED FOR UNKNOWN INDICATION
  7. NITROGLYCERIN [Suspect]
     Indication: PRODUCT USED FOR UNKNOWN INDICATION
  8. LORAZEPAM [Suspect]
     Indication: PRODUCT USED FOR UNKNOWN INDICATION
  9. LOPERAMIDE HYDROCHLORIDE [Suspect]
     Indication: PRODUCT USED FOR UNKNOWN INDICATION
  10. ISOSORBIDE MONONITRATE [Suspect]
     Indication: PRODUCT USED FOR UNKNOWN INDICATION
  11. CALCIUM CARBONATE [Suspect]
     Indication: PRODUCT USED FOR UNKNOWN INDICATION
  12. ACETYLSALICYLIC ACID [Suspect]
     Indication: PRODUCT USED FOR UNKNOWN INDICATION
  13. DILTIAZEM HYDROCHLORIDE [Suspect]
     Indication: PRODUCT USED FOR UNKNOWN INDICATION
  14. NICOTINE [Suspect]
     Indication: PRODUCT USED FOR UNKNOWN INDICATION
  15. SPIRIVA [Suspect]
     Indication: PRODUCT USED FOR UNKNOWN INDICATION
  16. TOPAMAX [Suspect]
     Indication: PRODUCT USED FOR UNKNOWN INDICATION
  17. ABILIFY [Suspect]
     Indication: PRODUCT USED FOR UNKNOWN INDICATION
  18. ACETAMINOPHEN [Suspect]
     Indication: PRODUCT USED FOR UNKNOWN INDICATION
  19. DIPHENHYDRAMINE HYDROCHLORIDE [Suspect]
     Indication: PRODUCT USED FOR UNKNOWN INDICATION
  20. ZOLPIDEM [Suspect]
     Indication: PRODUCT USED FOR UNKNOWN INDICATION
  21. BACTRIM [Suspect]
     Indication: PRODUCT USED FOR UNKNOWN INDICATION
  22. MAGNESIUM HYDROXIDE [Suspect]
     Indication: PRODUCT USED FOR UNKNOWN INDICATION
  23. LAMICTAL [Suspect]
     Indication: PRODUCT USED FOR UNKNOWN INDICATION
  24. OMEPRAZOLE [Suspect]
     Indication: PRODUCT USED FOR UNKNOWN INDICATION
  25. HALDOL [Suspect]
     Indication: PRODUCT USED FOR UNKNOWN INDICATION
  26. FISH OIL [Suspect]
     Indication: PRODUCT USED FOR UNKNOWN INDICATION

REACTIONS (3)
  - COMA [None]
  - CONDITION AGGRAVATED [None]
  - MENTAL DISORDER [None]
